FAERS Safety Report 9495045 (Version 2)
Quarter: 2013Q3

REPORT INFORMATION
  Report Type: Spontaneous
  Country: US (occurrence: None)
  Receive Date: 20130828
  Receipt Date: 20130912
  Transmission Date: 20140515
  Serious: Yes (Hospitalization)
  Sender: FDA-Public Use
  Company Number: JPI-P-034636

PATIENT
  Age: 35 Year
  Sex: Female

DRUGS (2)
  1. XYREM [Suspect]
     Indication: NARCOLEPSY
     Dosage: 6 GM (3 GM, 2 IN 1 D),ORAL
     Route: 048
     Dates: start: 20110909
  2. XYREM [Suspect]
     Indication: CATAPLEXY
     Dosage: 6 GM (3 GM, 2 IN 1 D),ORAL
     Route: 048
     Dates: start: 20110909

REACTIONS (2)
  - Pericarditis [None]
  - Blood pressure abnormal [None]
